FAERS Safety Report 9912900 (Version 1)
Quarter: 2014Q1

REPORT INFORMATION
  Report Type: Spontaneous
  Country: GB (occurrence: None)
  Receive Date: 20140212
  Receipt Date: 20140212
  Transmission Date: 20141002
  Serious: Yes (Other)
  Sender: FDA-Public Use
  Company Number: AUR-APL-2014-01449

PATIENT
  Age: 85 Year
  Sex: Female

DRUGS (1)
  1. RISPERIDONE (RISPERIDONE) [Suspect]
     Indication: PRODUCT USED FOR UNKNOWN INDICATION

REACTIONS (4)
  - Lower respiratory tract infection [None]
  - Urinary tract infection [None]
  - Condition aggravated [None]
  - Confusional state [None]
